FAERS Safety Report 18622624 (Version 1)
Quarter: 2020Q4

REPORT INFORMATION
  Report Type: Spontaneous
  Country: IT (occurrence: IT)
  Receive Date: 20201216
  Receipt Date: 20201216
  Transmission Date: 20210114
  Serious: Yes (Hospitalization)
  Sender: FDA-Public Use
  Company Number: IT-TEVA-2020-IT-1858254

PATIENT
  Age: 64 Year
  Sex: Male

DRUGS (3)
  1. VINCRISTINA TEVA ITALIA [Suspect]
     Active Substance: VINCRISTINE
     Indication: SOFT TISSUE SARCOMA
     Dosage: UNIT DOSE : 2 MG
     Route: 042
     Dates: start: 20201022, end: 20201022
  2. ADRIBLASTINA [Suspect]
     Active Substance: DOXORUBICIN HYDROCHLORIDE
     Indication: SOFT TISSUE SARCOMA
     Dosage: UNIT DOSE : 100 MG
     Route: 042
     Dates: start: 20201022, end: 20201022
  3. ENDOXAN BAXTER 500 MG POLVERE PER SOLUZIONE INIETTABILE [Suspect]
     Active Substance: CYCLOPHOSPHAMIDE
     Indication: SOFT TISSUE SARCOMA
     Dosage: UNIT DOSE : 1600 MG
     Route: 042
     Dates: start: 20201022, end: 20201022

REACTIONS (2)
  - Mucosal inflammation [Recovered/Resolved]
  - Neutropenia [Recovered/Resolved]

NARRATIVE: CASE EVENT DATE: 20201027
